FAERS Safety Report 17163996 (Version 3)
Quarter: 2020Q1

REPORT INFORMATION
  Report Type: Spontaneous
  Country: US (occurrence: US)
  Receive Date: 20191217
  Receipt Date: 20200316
  Transmission Date: 20200409
  Serious: Yes (Other)
  Sender: FDA-Public Use
  Company Number: US-JNJFOC-20191214904

PATIENT
  Age: 90 Year
  Sex: Male
  Weight: 73.5 kg

DRUGS (12)
  1. CARFILZOMIB [Concomitant]
     Active Substance: CARFILZOMIB
     Indication: PLASMA CELL MYELOMA
  2. DEXAMETHASONE. [Concomitant]
     Active Substance: DEXAMETHASONE
     Route: 065
  3. NEURONTIN [Concomitant]
     Active Substance: GABAPENTIN
     Route: 065
  4. ASPRIN [Concomitant]
     Active Substance: ASPIRIN
     Route: 065
  5. DARZALEX [Suspect]
     Active Substance: DARATUMUMAB
     Indication: PLASMA CELL MYELOMA
     Dosage: EXPIRY DATE FOR BATCH 19E172 WAS /JUN/2021, WEEKLY FOR 3 DOSES, EVERY 2 WEEKS FOR 8 DOSES AND THEN E
     Route: 042
     Dates: start: 201711, end: 20190408
  6. NINLARO [Concomitant]
     Active Substance: IXAZOMIB CITRATE
     Route: 065
  7. FLOMAX [Concomitant]
     Active Substance: TAMSULOSIN HYDROCHLORIDE
     Route: 065
  8. XALATAN [Concomitant]
     Active Substance: LATANOPROST
     Route: 031
  9. PROTONIX [Concomitant]
     Active Substance: PANTOPRAZOLE SODIUM
     Route: 065
  10. TRIAMCINOLONE [Concomitant]
     Active Substance: TRIAMCINOLONE
     Route: 065
  11. DARZALEX [Suspect]
     Active Substance: DARATUMUMAB
     Dosage: EXPIRY DATE FOR BATCH 19E172 WAS /JUN/2021
     Route: 042
     Dates: start: 20191206, end: 20191206
  12. ULORIC [Concomitant]
     Active Substance: FEBUXOSTAT
     Route: 065

REACTIONS (3)
  - Infusion related reaction [Recovered/Resolved]
  - Drug ineffective [Unknown]
  - Plasma cell myeloma [Unknown]

NARRATIVE: CASE EVENT DATE: 2019
